FAERS Safety Report 13703650 (Version 1)
Quarter: 2017Q2

REPORT INFORMATION
  Report Type: Spontaneous
  Country: US (occurrence: US)
  Receive Date: 20170629
  Receipt Date: 20170629
  Transmission Date: 20170830
  Serious: Yes (Hospitalization, Other)
  Sender: FDA-Public Use
  Company Number: US-MAYNE PHARMA-2017MYN001116

PATIENT

DRUGS (5)
  1. FENTANYL. [Suspect]
     Active Substance: FENTANYL
     Dosage: 50 ?G/H, UNK
     Route: 062
     Dates: end: 20160508
  2. REVATIO [Concomitant]
     Active Substance: SILDENAFIL CITRATE
     Indication: PULMONARY HYPERTENSION
     Dosage: 40 MG, TID
     Route: 048
  3. WARFARIN [Concomitant]
     Active Substance: WARFARIN
     Indication: THROMBOSIS
     Dosage: UNK
     Route: 048
     Dates: start: 2005
  4. FENTANYL. [Suspect]
     Active Substance: FENTANYL
     Indication: PRODUCT USED FOR UNKNOWN INDICATION
     Dosage: 100 ?G/H, UNK
     Route: 062
  5. FENTANYL. [Suspect]
     Active Substance: FENTANYL
     Dosage: 75 ?G/H, UNK
     Route: 062

REACTIONS (6)
  - Acute kidney injury [Unknown]
  - Blood pressure increased [Unknown]
  - Withdrawal syndrome [Recovered/Resolved]
  - Crying [Unknown]
  - Coma [Unknown]
  - Oxygen saturation decreased [Unknown]

NARRATIVE: CASE EVENT DATE: 2016
